FAERS Safety Report 15329666 (Version 2)
Quarter: 2018Q3

REPORT INFORMATION
  Report Type: Spontaneous
  Country: US (occurrence: US)
  Receive Date: 20180829
  Receipt Date: 20180829
  Transmission Date: 20181010
  Serious: No
  Sender: FDA-Public Use
  Company Number: US-BAUSCH-BL-2018-022861

PATIENT
  Age: 60 Year
  Sex: Female
  Weight: 63.56 kg

DRUGS (2)
  1. LUMIFY [Suspect]
     Active Substance: BRIMONIDINE TARTRATE
     Indication: ERYTHEMA
     Dosage: ONE TIME
     Route: 047
     Dates: start: 20180812
  2. LUMIFY [Suspect]
     Active Substance: BRIMONIDINE TARTRATE
     Route: 047
     Dates: start: 20180815

REACTIONS (2)
  - Eye colour change [Recovered/Resolved]
  - Lacrimal duct pigmentation [Recovered/Resolved]

NARRATIVE: CASE EVENT DATE: 201808
